FAERS Safety Report 9731232 (Version 1)
Quarter: 2013Q4

REPORT INFORMATION
  Report Type: Spontaneous
  Country: CO (occurrence: CO)
  Receive Date: 20131203
  Receipt Date: 20131203
  Transmission Date: 20140711
  Serious: Yes (Hospitalization, Disabling)
  Sender: FDA-Public Use
  Company Number: CO-ELI_LILLY_AND_COMPANY-CO201311008059

PATIENT
  Age: 34 Year
  Sex: Female

DRUGS (2)
  1. OLANZAPINE [Suspect]
     Indication: SCHIZOAFFECTIVE DISORDER
     Dosage: 30 MG, QD
     Route: 048
     Dates: start: 20121025
  2. PIPOTIAZINE [Concomitant]
     Indication: SCHIZOAFFECTIVE DISORDER
     Dosage: 1 DF, UNKNOWN
     Route: 065

REACTIONS (2)
  - Schizophrenia [Not Recovered/Not Resolved]
  - Overdose [Not Recovered/Not Resolved]
